FAERS Safety Report 8103568-7 (Version None)
Quarter: 2012Q1

REPORT INFORMATION
  Report Type: 
  Country: None (occurrence: None)
  Receive Date: 20120201
  Receipt Date: 20120130
  Transmission Date: 20120608
  Serious: Yes (Hospitalization, Disabling)
  Sender: FDA-Public Use
  Company Number: PHHY2012ES007741

PATIENT
  Age: 55 Year
  Sex: Male

DRUGS (9)
  1. TRETINOIN [Concomitant]
  2. METHOTREXATE [Concomitant]
  3. EXJADE [Suspect]
     Dosage: 1250 MG, QD
     Route: 048
     Dates: start: 20111229
  4. ATORVASTATIN [Concomitant]
  5. ISOSORBIDE MONONITRATE [Concomitant]
  6. ATENOLOL [Concomitant]
  7. NEBIVOLOL [Concomitant]
  8. MERCAPTOPURINE [Concomitant]
  9. EXJADE [Suspect]
     Indication: IRON OVERLOAD
     Dosage: 500 MG, QD
     Route: 048
     Dates: start: 20111018

REACTIONS (10)
  - BONE MARROW FAILURE [None]
  - PYREXIA [None]
  - FATIGUE [None]
  - ANAEMIA [None]
  - LEUKOPENIA [None]
  - PROCTITIS [None]
  - HAEMATOCHEZIA [None]
  - DRUG INTERACTION [None]
  - THROMBOCYTOPENIA [None]
  - PANCYTOPENIA [None]
